FAERS Safety Report 13814522 (Version 2)
Quarter: 2017Q3

REPORT INFORMATION
  Report Type: Report from Study
  Country: PL (occurrence: PL)
  Receive Date: 20170731
  Receipt Date: 20170829
  Transmission Date: 20171127
  Serious: Yes (Hospitalization)
  Sender: FDA-Public Use
  Company Number: US-ASTRAZENECA-2017SE77965

PATIENT
  Age: 30431 Day
  Sex: Male
  Weight: 83.3 kg

DRUGS (19)
  1. MEDI4736 [Suspect]
     Active Substance: DURVALUMAB
     Indication: ACUTE MYELOID LEUKAEMIA
     Route: 041
     Dates: start: 20170530, end: 20170530
  2. METAMIZOLE [Concomitant]
     Active Substance: METAMIZOLE
     Indication: PYREXIA
  3. CIPRINOL [Concomitant]
     Active Substance: CIPROFLOXACIN
     Indication: PYREXIA
  4. MEDI4736 [Suspect]
     Active Substance: DURVALUMAB
     Indication: ACUTE MYELOID LEUKAEMIA
     Route: 041
     Dates: start: 20170629
  5. AZACITIDINE. [Suspect]
     Active Substance: AZACITIDINE
     Indication: ACUTE MYELOID LEUKAEMIA
     Route: 058
     Dates: start: 20170629, end: 20170705
  6. ONDANSETRON [Concomitant]
     Active Substance: ONDANSETRON
     Indication: PROPHYLAXIS OF NAUSEA AND VOMITING
     Dates: start: 20170629, end: 20170705
  7. PLASMOLYTE [Concomitant]
     Indication: ASTHENIA
     Dates: start: 20170705, end: 20170705
  8. AUGMENTIN [Concomitant]
     Active Substance: AMOXICILLIN\CLAVULANATE POTASSIUM
     Indication: INFECTION PROPHYLAXIS
     Dates: start: 20170706, end: 20170711
  9. ZOXON [Concomitant]
     Active Substance: DOXAZOSIN\DOXAZOSIN MESYLATE
     Indication: BENIGN PROSTATIC HYPERPLASIA
     Dates: start: 200212
  10. AZACITIDINE. [Suspect]
     Active Substance: AZACITIDINE
     Indication: ACUTE MYELOID LEUKAEMIA
     Route: 058
  11. CONCOR [Concomitant]
     Active Substance: BISOPROLOL FUMARATE
     Indication: HYPERTENSION
     Dates: start: 20161128
  12. PLASMOLYTE [Concomitant]
     Indication: PROPHYLAXIS AGAINST DEHYDRATION
     Dates: start: 20170705, end: 20170705
  13. AUGMENTIN [Concomitant]
     Active Substance: AMOXICILLIN\CLAVULANATE POTASSIUM
     Indication: INFECTION PROPHYLAXIS
     Dates: start: 20170711, end: 20170718
  14. PENESTER [Concomitant]
     Indication: BENIGN PROSTATIC HYPERPLASIA
     Dates: start: 200212
  15. SALINE [Concomitant]
     Active Substance: SODIUM CHLORIDE
     Indication: PROPHYLAXIS AGAINST DEHYDRATION
     Dates: start: 20170627, end: 20170705
  16. PLASMOLYTE [Concomitant]
     Indication: ASTHENIA
     Dates: start: 20170706, end: 20170711
  17. AZACITIDINE. [Suspect]
     Active Substance: AZACITIDINE
     Indication: ACUTE MYELOID LEUKAEMIA
     Route: 058
     Dates: start: 20170530, end: 20170605
  18. PARACETAMOL [Concomitant]
     Active Substance: ACETAMINOPHEN
     Indication: PYREXIA
     Dates: start: 20170705, end: 20170705
  19. PLASMOLYTE [Concomitant]
     Indication: PROPHYLAXIS AGAINST DEHYDRATION
     Dates: start: 20170706, end: 20170711

REACTIONS (1)
  - Thrombocytopenia [Recovered/Resolved]

NARRATIVE: CASE EVENT DATE: 20170706
